FAERS Safety Report 17245318 (Version 1)
Quarter: 2020Q1

REPORT INFORMATION
  Report Type: Spontaneous
  Country: US (occurrence: US)
  Receive Date: 20200108
  Receipt Date: 20200108
  Transmission Date: 20200409
  Serious: No
  Sender: FDA-Public Use
  Company Number: US-LUPIN PHARMACEUTICALS INC.-2019-07529

PATIENT
  Sex: Male

DRUGS (2)
  1. CEFDINIR FOR ORAL SUSPENSION [Suspect]
     Active Substance: CEFDINIR
     Indication: PRODUCT USED FOR UNKNOWN INDICATION
     Dosage: UNK (A YEAR OR TWO AGO)
     Route: 065
  2. CEFDINIR FOR ORAL SUSPENSION [Suspect]
     Active Substance: CEFDINIR
     Dosage: UNK (FILLED FROM DIFFERENT PHARMACY)
     Route: 065

REACTIONS (2)
  - Incorrect product administration duration [Unknown]
  - No adverse event [Unknown]
